FAERS Safety Report 22023108 (Version 1)
Quarter: 2023Q1

REPORT INFORMATION
  Report Type: Spontaneous
  Country: FR (occurrence: FR)
  Receive Date: 20230223
  Receipt Date: 20230223
  Transmission Date: 20230418
  Serious: Yes (Hospitalization, Other)
  Sender: FDA-Public Use
  Company Number: FR-CELLTRION HEALTHCARE HUNGARY KFT-2023FR002682

PATIENT
  Age: 41 Year
  Sex: Female

DRUGS (13)
  1. RITUXIMAB [Suspect]
     Active Substance: RITUXIMAB
     Indication: Diffuse large B-cell lymphoma
     Dosage: 8 COURSES OF R-CHOP (RITUXIMAB, CYCLOPHOSPHAMIDE, DOXORUBICIN, VINCRISTINE, AND PREDNISONE)
     Route: 065
  2. RITUXIMAB [Suspect]
     Active Substance: RITUXIMAB
     Dosage: 4 COURSES OF R-DHAP REGIMEN (RITUXIMAB, DEXAMETHASONE, AND HIGH-DOSE CYTARABINE, CISPLATIN)
     Route: 065
  3. CYCLOPHOSPHAMIDE [Suspect]
     Active Substance: CYCLOPHOSPHAMIDE
     Indication: Diffuse large B-cell lymphoma
     Dosage: 8 COURSES OF R-CHOP RESULTING IN A COMPLETE METABOLIC RESPONSE
     Route: 065
  4. PREDNISONE [Suspect]
     Active Substance: PREDNISONE
     Indication: Diffuse large B-cell lymphoma
     Dosage: 8 COURSES OF R-CHOP (RITUXIMAB, CYCLOPHOSPHAMIDE, DOXORUBICIN, VINCRISTINE, AND PREDNISONE)
     Route: 065
  5. CYTARABINE [Suspect]
     Active Substance: CYTARABINE
     Indication: Diffuse large B-cell lymphoma
     Dosage: CONSOLIDATED WITH HIGH-DOSE CHEMOTHERAPY (CARMUSTINE, ETOPOSIDE, CYTARABINE, AND MELPHALAN)
     Route: 065
  6. CYTARABINE [Suspect]
     Active Substance: CYTARABINE
     Dosage: 4 COURSES OF R-DHAP REGIMEN (RITUXIMAB, DEXAMETHASONE, AND HIGH-DOSE CYTARABINE, CISPLATIN) WITH COM
     Route: 065
  7. MELPHALAN [Suspect]
     Active Substance: MELPHALAN
     Indication: Diffuse large B-cell lymphoma
     Dosage: UNK, CONSOLIDATED WITH HIGH-DOSE CHEMOTHERAPY (CARMUSTINE, ETOPOSIDE, CYTARABINE, AND MELPHALAN)
     Route: 065
  8. DEXAMETHASONE SODIUM SUCCINATE [Suspect]
     Active Substance: DEXAMETHASONE SODIUM SUCCINATE
     Indication: Diffuse large B-cell lymphoma
     Dosage: UNK, 4 COURSES OF R-DHAP REGIMEN (RITUXIMAB, DEXAMETHASONE, AND HIGH-DOSE CYTARABINE, CISPLATIN)
     Route: 065
  9. VINCRISTINE SULFATE [Suspect]
     Active Substance: VINCRISTINE SULFATE
     Indication: Diffuse large B-cell lymphoma
     Dosage: 8 COURSES OF R-CHOP (RITUXIMAB, CYCLOPHOSPHAMIDE, DOXORUBICIN, VINCRISTINE, AND PREDNISONE)
     Route: 065
  10. CISPLATIN [Suspect]
     Active Substance: CISPLATIN
     Indication: Diffuse large B-cell lymphoma
     Dosage: 4 COURSES OF R-DHAP REGIMEN (RITUXIMAB, DEXAMETHASONE, AND HIGH-DOSE CYTARABINE, CISPLATIN)
     Route: 065
  11. ETOPOSIDE [Suspect]
     Active Substance: ETOPOSIDE
     Indication: Diffuse large B-cell lymphoma
     Dosage: UNK CONSOLIDATED WITH HIGH-DOSE CHEMOTHERAPY (CARMUSTINE, ETOPOSIDE, CYTARABINE, AND MELPHALAN)
     Route: 065
  12. CARMUSTINE [Suspect]
     Active Substance: CARMUSTINE
     Indication: Diffuse large B-cell lymphoma
     Dosage: CONSOLIDATED WITH HIGH-DOSE CHEMOTHERAPY (CARMUSTINE, ETOPOSIDE, CYTARABINE, AND MELPHALAN)
     Route: 065
  13. DOXORUBICIN [Suspect]
     Active Substance: DOXORUBICIN
     Indication: Diffuse large B-cell lymphoma
     Dosage: 8 COURSES OF R-CHOP (RITUXIMAB, CYCLOPHOSPHAMIDE, DOXORUBICIN, VINCRISTINE, AND PREDNISONE).
     Route: 065

REACTIONS (5)
  - Febrile neutropenia [Unknown]
  - Cytomegalovirus infection reactivation [Unknown]
  - Lymphadenitis [Unknown]
  - Lymphadenitis viral [Recovered/Resolved]
  - Product use issue [Unknown]
